FAERS Safety Report 15893449 (Version 1)
Quarter: 2019Q1

REPORT INFORMATION
  Report Type: Spontaneous
  Country: US (occurrence: US)
  Receive Date: 20190131
  Receipt Date: 20190131
  Transmission Date: 20190417
  Serious: No
  Sender: FDA-Public Use
  Company Number: US-ASTRAZENECA-2019SE02500

PATIENT
  Sex: Female
  Weight: 76.2 kg

DRUGS (8)
  1. BABY ASPIRIN [Concomitant]
     Active Substance: ASPIRIN
     Indication: ANTICOAGULANT THERAPY
     Route: 048
  2. VITAMIN D [Concomitant]
     Active Substance: CHOLECALCIFEROL
     Indication: TANNING
     Route: 048
  3. COQ 10 [Concomitant]
     Active Substance: UBIDECARENONE
     Indication: CARDIAC DISORDER
     Route: 048
  4. CALCIUM PLUS VITAMIN K PLUS VITAMIN D [Concomitant]
     Indication: MENOPAUSE
     Route: 048
  5. PULMICORT FLEXHALER [Suspect]
     Active Substance: BUDESONIDE
     Indication: PLEURAL EFFUSION
     Dosage: 180 MCG, ONE PUFF ONCE DAILY
     Route: 055
     Dates: start: 201306
  6. LEVOTHROXINE [Concomitant]
     Active Substance: LEVOTHYROXINE
     Indication: THYROID DISORDER
     Route: 048
  7. MULTI-VITES [Concomitant]
     Indication: ILL-DEFINED DISORDER
     Route: 048
  8. PULMICORT FLEXHALER [Suspect]
     Active Substance: BUDESONIDE
     Indication: ASTHMA
     Dosage: 180 MCG, ONE PUFF ONCE DAILY
     Route: 055
     Dates: start: 201306

REACTIONS (4)
  - Poor quality sleep [Unknown]
  - Expired product administered [Unknown]
  - Panic reaction [Unknown]
  - Off label use [Unknown]
